FAERS Safety Report 5742948-1 (Version None)
Quarter: 2008Q2

REPORT INFORMATION
  Report Type: 
  Country: None (occurrence: None)
  Receive Date: 20080515
  Receipt Date: 20080515
  Transmission Date: 20081010
  Serious: No
  Sender: FDA-Public Use
  Company Number: None

PATIENT
  Age: 16 Year
  Sex: Male
  Weight: 74.8435 kg

DRUGS (3)
  1. TUSSINEX PENNKINETIC SUSP UCBPH [Suspect]
     Indication: BACTERIAL INFECTION
     Dosage: 1 TEASPOON AT BEDTIME ONLY PO
     Route: 048
     Dates: start: 20080411, end: 20080416
  2. TUSSINEX PENNKINETIC SUSP UCBPH [Suspect]
     Indication: BRONCHIOLITIS
     Dosage: 1 TEASPOON AT BEDTIME ONLY PO
     Route: 048
     Dates: start: 20080411, end: 20080416
  3. TUSSINEX PENNKINETIC SUSP UCBPH [Suspect]
     Indication: UPPER RESPIRATORY TRACT INFECTION
     Dosage: 1 TEASPOON AT BEDTIME ONLY PO
     Route: 048
     Dates: start: 20080411, end: 20080416

REACTIONS (4)
  - DEPRESSED MOOD [None]
  - EMOTIONAL DISORDER [None]
  - FEELING OF DESPAIR [None]
  - TEARFULNESS [None]
